FAERS Safety Report 14446194 (Version 1)
Quarter: 2018Q1

REPORT INFORMATION
  Report Type: Spontaneous
  Country: US (occurrence: US)
  Receive Date: 20180126
  Receipt Date: 20180126
  Transmission Date: 20180509
  Serious: No
  Sender: FDA-Public Use
  Company Number: US-ABBVIE-17K-163-2083545-00

PATIENT
  Sex: Female

DRUGS (3)
  1. HUMIRA [Suspect]
     Active Substance: ADALIMUMAB
     Dosage: ONE PEN
     Route: 058
     Dates: start: 201708, end: 201708
  2. HUMIRA [Suspect]
     Active Substance: ADALIMUMAB
     Dosage: TWO PENS
     Route: 058
     Dates: start: 2017, end: 2017
  3. HUMIRA [Suspect]
     Active Substance: ADALIMUMAB
     Indication: PRODUCT USED FOR UNKNOWN INDICATION
     Dosage: TWO PENS
     Route: 058
     Dates: start: 201707, end: 201707

REACTIONS (1)
  - Blood blister [Unknown]
